FAERS Safety Report 17339843 (Version 1)
Quarter: 2020Q1

REPORT INFORMATION
  Report Type: Spontaneous
  Country: US (occurrence: US)
  Receive Date: 20200129
  Receipt Date: 20200129
  Transmission Date: 20200409
  Serious: No
  Sender: FDA-Public Use
  Company Number: US-ALLERGAN-1921092US

PATIENT
  Age: 65 Year
  Sex: Female

DRUGS (5)
  1. BOTOX COSMETIC [Suspect]
     Active Substance: ONABOTULINUMTOXINA
     Indication: SKIN WRINKLING
     Dosage: 30 UNITS, SINGLE
     Dates: start: 20190514, end: 20190514
  2. BOTOX COSMETIC [Suspect]
     Active Substance: ONABOTULINUMTOXINA
     Indication: SKIN WRINKLING
  3. VITAMIN B12 [Concomitant]
     Active Substance: CYANOCOBALAMIN
     Indication: BLOOD FOLATE DECREASED
  4. LIOTHYRONINE [Concomitant]
     Active Substance: LIOTHYRONINE
     Indication: HYPOTHYROIDISM
     Dosage: 67.5 ?G, BID
     Route: 048
  5. DEPLIN [Concomitant]
     Active Substance: LEVOMEFOLATE CALCIUM
     Indication: BLOOD FOLATE DECREASED

REACTIONS (8)
  - Periorbital swelling [Recovered/Resolved]
  - Drug ineffective [Unknown]
  - Cough [Recovered/Resolved]
  - Wheezing [Recovering/Resolving]
  - Influenza like illness [Recovering/Resolving]
  - Pneumonia [Recovering/Resolving]
  - Nasopharyngitis [Recovering/Resolving]
  - Asthenia [Recovering/Resolving]

NARRATIVE: CASE EVENT DATE: 201905
